FAERS Safety Report 17828738 (Version 3)
Quarter: 2020Q3

REPORT INFORMATION
  Report Type: Report from Study
  Country: US (occurrence: US)
  Receive Date: 20200527
  Receipt Date: 20200715
  Transmission Date: 20201102
  Serious: Yes (Hospitalization)
  Sender: FDA-Public Use
  Company Number: US-PFIZER INC-2020205472

PATIENT
  Age: 58 Year
  Sex: Male
  Weight: 97 kg

DRUGS (4)
  1. OXALIPLATIN. [Suspect]
     Active Substance: OXALIPLATIN
     Indication: GASTROOESOPHAGEAL CANCER
     Dosage: 185 MG, CYCLIC (ONCE EVERY TWO WEEKS)
     Dates: start: 20200424, end: 20200424
  2. TRASTUZUMAB. [Suspect]
     Active Substance: TRASTUZUMAB
     Indication: GASTROOESOPHAGEAL CANCER
     Dosage: 600 MG, CYCLIC (ONCE EVERY TWO WEEKS)
     Dates: start: 20200424, end: 20200424
  3. AVELUMAB [Suspect]
     Active Substance: AVELUMAB
     Indication: GASTROOESOPHAGEAL CANCER
     Dosage: 800 MG, CYCLIC (ONCE EVERY TWO WEEKS)
     Dates: start: 20200424, end: 20200424
  4. 5?FU [Suspect]
     Active Substance: FLUOROURACIL
     Indication: GASTROOESOPHAGEAL CANCER
     Dosage: 870 MG, CYCLIC (ONCE EVERY TWO WEEKS)
     Dates: start: 20200424, end: 20200424

REACTIONS (1)
  - Pneumonia [Recovered/Resolved]

NARRATIVE: CASE EVENT DATE: 20200506
